FAERS Safety Report 15988838 (Version 1)
Quarter: 2019Q1

REPORT INFORMATION
  Report Type: Spontaneous
  Country: IT (occurrence: IT)
  Receive Date: 20190221
  Receipt Date: 20190221
  Transmission Date: 20190418
  Serious: Yes (Hospitalization, Other)
  Sender: FDA-Public Use
  Company Number: IT-ASTELLAS-2019US006138

PATIENT
  Age: 4 Year
  Sex: Male

DRUGS (4)
  1. URSODEOXYCHOLIC ACID [Concomitant]
     Active Substance: URSODIOL
     Indication: PROPHYLAXIS
     Route: 065
  2. DEFEROXAMINE [Suspect]
     Active Substance: DEFEROXAMINE\DEFEROXAMINE MESYLATE
     Indication: CHELATION THERAPY
     Route: 042
  3. TACROLIMUS. [Suspect]
     Active Substance: TACROLIMUS
     Indication: PROPHYLAXIS AGAINST GRAFT VERSUS HOST DISEASE
     Dosage: UNK UNK, UNKNOWN FREQ.
     Route: 065
  4. PREDNISONE. [Concomitant]
     Active Substance: PREDNISONE
     Indication: GRAFT VERSUS HOST DISEASE
     Route: 065

REACTIONS (11)
  - Hepatic function abnormal [Unknown]
  - Venoocclusive disease [Recovered/Resolved]
  - Acute graft versus host disease in liver [Recovered/Resolved]
  - Drug-induced liver injury [Recovered/Resolved]
  - Metabolic acidosis [Unknown]
  - Neutropenia [Unknown]
  - Product use in unapproved indication [Unknown]
  - Renal impairment [Unknown]
  - Graft versus host disease [Unknown]
  - Haemosiderosis [Unknown]
  - Ascites [Recovered/Resolved]
